FAERS Safety Report 10404585 (Version 1)
Quarter: 2014Q2

REPORT INFORMATION
  Report Type: Spontaneous
  Country: US (occurrence: None)
  Receive Date: 20140530
  Receipt Date: 20140530
  Transmission Date: 20141212
  Serious: Yes (Other)
  Sender: FDA-Public Use
  Company Number: 20140159

PATIENT
  Age: 58 Year
  Sex: Female

DRUGS (16)
  1. INJECTAFER (FERRIC CARBOXYMALTOSE INJECTION) [Suspect]
     Indication: PRODUCT USED FOR UNKNOWN INDICATION
     Route: 042
     Dates: start: 20140219, end: 20140312
  2. BENADRYL (DIPHENHYDRAMINE) [Concomitant]
  3. DILAUDID (HYDROMORPHONE) [Concomitant]
  4. EMEND (APREPITANT) [Concomitant]
  5. IMMODIUM AD (LOPERAMIDE) [Concomitant]
  6. LOMOTIL [Concomitant]
  7. NEULASTA SQ (PEGFILGRASTIM) [Concomitant]
  8. TYLENOL (ACETAMINOPHEN) [Concomitant]
  9. CARBOPLATIN [Concomitant]
  10. PACLITAXEL [Concomitant]
  11. ONDANSETRON [Concomitant]
  12. METHYLPREDNISOLONE [Concomitant]
  13. FAMOTIDINE [Concomitant]
  14. DEXAMETHASONE [Concomitant]
  15. CYCLOBENZAPRINE [Concomitant]
  16. PROCHLORPERAZINE MALEATE [Concomitant]

REACTIONS (2)
  - Hypersensitivity [None]
  - Overdose [None]
